FAERS Safety Report 8145014-3 (Version None)
Quarter: 2012Q1

REPORT INFORMATION
  Report Type: 
  Country: None (occurrence: None)
  Receive Date: 20120217
  Receipt Date: 20120206
  Transmission Date: 20120608
  Serious: Yes (Hospitalization)
  Sender: FDA-Public Use
  Company Number: PHHY2012EC013292

PATIENT
  Sex: Female

DRUGS (2)
  1. DIOVAN HCT [Suspect]
     Indication: HYPERTENSION
     Dosage: 1 DF (VALS 160 MG, HYDR 12.5 MG), DAILY
     Route: 048
     Dates: start: 20111002, end: 20111018
  2. DIOVAN HCT [Suspect]
     Dosage: 1 DF (VALS 80 MG, HYDR 12.5 MG), DAILY
     Route: 048
     Dates: start: 20111020

REACTIONS (2)
  - SYNCOPE [None]
  - ANGINA UNSTABLE [None]
